FAERS Safety Report 22301019 (Version 2)
Quarter: 2025Q3

REPORT INFORMATION
  Report Type: Spontaneous
  Country: US (occurrence: US)
  Receive Date: 20230509
  Receipt Date: 20250726
  Transmission Date: 20251020
  Serious: No
  Sender: SANOFI AVENTIS
  Company Number: US-SA-SAC20230503000549

PATIENT
  Age: 50 Year
  Sex: Male

DRUGS (21)
  1. DUPIXENT [Suspect]
     Active Substance: DUPILUMAB
     Indication: Psoriasis
     Dosage: 300 MG, QOW
     Route: 058
     Dates: start: 20210702
  2. DUPIXENT [Suspect]
     Active Substance: DUPILUMAB
     Indication: Dermatitis atopic
  3. DUPIXENT [Suspect]
     Active Substance: DUPILUMAB
     Indication: Psoriasis
  4. CHANTIX [Concomitant]
     Active Substance: VARENICLINE TARTRATE
  5. CLOBETASOL [Concomitant]
     Active Substance: CLOBETASOL
  6. FLUOCINONIDE [Concomitant]
     Active Substance: FLUOCINONIDE
  7. KENALOG [Concomitant]
     Active Substance: TRIAMCINOLONE ACETONIDE
  8. SILDENAFIL [Concomitant]
     Active Substance: SILDENAFIL
  9. SIMVASTATIN [Concomitant]
     Active Substance: SIMVASTATIN
  10. SULFACET [SULFACETAMIDE SODIUM] [Concomitant]
  11. TADALAFIL [Concomitant]
     Active Substance: TADALAFIL
  12. ZOLPIDEM [Concomitant]
     Active Substance: ZOLPIDEM TARTRATE
  13. TRIAMCINOLONE [Concomitant]
     Active Substance: TRIAMCINOLONE
  14. HYDROCORT [HYDROCORTISONE] [Concomitant]
  15. CLOBETASOL [Concomitant]
     Active Substance: CLOBETASOL
  16. BUPROPION [Concomitant]
     Active Substance: BUPROPION
  17. DEXAMETHASONE PHOSPHATE [Concomitant]
     Active Substance: DEXAMETHASONE PHOSPHATE
  18. AMMONIUM LACTATE [Concomitant]
     Active Substance: AMMONIUM LACTATE
  19. ALBUTEROL SULFATE [Concomitant]
     Active Substance: ALBUTEROL SULFATE
  20. BOOSTRIX [Concomitant]
     Active Substance: TETANUS TOXOID, REDUCED DIPHTHERIA TOXOID AND ACELLULAR PERTUSSIS VACCINE ADSORBED, TDAP
  21. BETAMETHASONE DIPROPIONATE [Concomitant]
     Active Substance: BETAMETHASONE DIPROPIONATE

REACTIONS (3)
  - Drug ineffective [Unknown]
  - Product use in unapproved indication [Unknown]
  - Product dose omission in error [Unknown]

NARRATIVE: CASE EVENT DATE: 20210702
